FAERS Safety Report 10206054 (Version 1)
Quarter: 2014Q2

REPORT INFORMATION
  Report Type: Spontaneous
  Country: US (occurrence: None)
  Receive Date: 20140527
  Receipt Date: 20140527
  Transmission Date: 20141212
  Serious: No
  Sender: FDA-Public Use
  Company Number: None

PATIENT
  Age: 8 Year
  Sex: Male
  Weight: 27.22 kg

DRUGS (1)
  1. CONCERTA [Suspect]
     Indication: ATTENTION DEFICIT/HYPERACTIVITY DISORDER
     Route: 048
     Dates: start: 20130211, end: 20140306

REACTIONS (11)
  - Staring [None]
  - Dizziness [None]
  - Flat affect [None]
  - Apathy [None]
  - Enuresis [None]
  - Abnormal behaviour [None]
  - Social avoidant behaviour [None]
  - Amnesia [None]
  - Thinking abnormal [None]
  - Posture abnormal [None]
  - Decreased activity [None]
